FAERS Safety Report 10189105 (Version 2)
Quarter: 2014Q2

REPORT INFORMATION
  Report Type: Spontaneous
  Country: US (occurrence: US)
  Receive Date: 20140522
  Receipt Date: 20140606
  Transmission Date: 20141212
  Serious: Yes (Hospitalization)
  Sender: FDA-Public Use
  Company Number: US-ACTELION-A-NJ2014-99179

PATIENT
  Age: 71 Year
  Sex: Female

DRUGS (2)
  1. VELETRI [Suspect]
     Indication: COR PULMONALE CHRONIC
     Dosage: 12.5 NG/KG, PER MIN
     Route: 042
     Dates: start: 20131002
  2. RIOCIGUAT [Concomitant]

REACTIONS (4)
  - Fall [Unknown]
  - Rib fracture [Unknown]
  - Contusion [Unknown]
  - Balance disorder [Unknown]
